FAERS Safety Report 9255843 (Version 1)
Quarter: 2013Q2

REPORT INFORMATION
  Report Type: Spontaneous
  Country: JP (occurrence: JP)
  Receive Date: 20130425
  Receipt Date: 20130425
  Transmission Date: 20140414
  Serious: Yes (Other)
  Sender: FDA-Public Use
  Company Number: JP-PFIZER INC-2013125478

PATIENT
  Age: 38 Year
  Sex: Female
  Weight: 63.6 kg

DRUGS (4)
  1. JZOLOFT [Suspect]
     Indication: BIPOLAR DISORDER
     Dosage: 100 MG, DAILY
     Route: 048
  2. MYSLEE [Concomitant]
     Indication: BIPOLAR DISORDER
     Dosage: 10 MG, DAILY
     Route: 048
  3. DORAL [Concomitant]
     Dosage: UNK
     Route: 048
  4. FERRO-GRADUMET [Concomitant]
     Dosage: UNK
     Route: 048

REACTIONS (7)
  - Complication of delivery [Unknown]
  - Affect lability [Unknown]
  - Hypomania [Unknown]
  - Depression [Unknown]
  - Off label use [Not Recovered/Not Resolved]
  - Caesarean section [None]
  - Exposure during pregnancy [None]
